FAERS Safety Report 16120614 (Version 1)
Quarter: 2019Q1

REPORT INFORMATION
  Report Type: Spontaneous
  Country: NO (occurrence: NO)
  Receive Date: 20190327
  Receipt Date: 20190327
  Transmission Date: 20190418
  Serious: Yes (Death, Other)
  Sender: FDA-Public Use
  Company Number: NO-009507513-1809NOR002484

PATIENT
  Sex: Male

DRUGS (5)
  1. ABRAXANE [Concomitant]
     Active Substance: PACLITAXEL
     Dosage: UNK
  2. KEYTRUDA [Suspect]
     Active Substance: PEMBROLIZUMAB
     Indication: PANCREATIC CARCINOMA
     Dosage: UNK
     Dates: start: 201804
  3. MARAVIROC [Concomitant]
     Active Substance: MARAVIROC
     Dosage: UNK
  4. FLUOROURACIL (+) IRINOTECAN HYDROCHLORIDE (+) LEVOLEUCOVORIN CALCIUM ( [Concomitant]
     Dosage: UNK
  5. P53 PROTEIN RECOMBINANT VECTOR VACCINE (MODIFIED VACCINIA VIRUS ANKIRA [Concomitant]
     Dosage: UNK

REACTIONS (2)
  - Death [Fatal]
  - Off label use [Unknown]

NARRATIVE: CASE EVENT DATE: 201804
